FAERS Safety Report 17644978 (Version 1)
Quarter: 2020Q2

REPORT INFORMATION
  Report Type: Spontaneous
  Country: US (occurrence: US)
  Receive Date: 20200408
  Receipt Date: 20200408
  Transmission Date: 20200713
  Serious: No
  Sender: FDA-Public Use
  Company Number: None

PATIENT
  Age: 51 Year
  Sex: Female

DRUGS (4)
  1. SERTRALINE HYDROCHLORIDE. [Suspect]
     Active Substance: SERTRALINE HYDROCHLORIDE
  2. MONTELUKAST SODIUM. [Suspect]
     Active Substance: MONTELUKAST SODIUM
     Indication: TINNITUS
     Dosage: ?          QUANTITY:1 TABLET(S);?
     Route: 048
     Dates: start: 20200305, end: 20200405
  3. ONE A DAY WOMENS VITAMINS [Concomitant]
  4. PRAVASTATIN. [Suspect]
     Active Substance: PRAVASTATIN

REACTIONS (8)
  - Fatigue [None]
  - Affective disorder [None]
  - Feeling abnormal [None]
  - Depression [None]
  - Sleep disorder [None]
  - Generalised anxiety disorder [None]
  - Anger [None]
  - Abnormal dreams [None]

NARRATIVE: CASE EVENT DATE: 20200406
